FAERS Safety Report 9967661 (Version 1)
Quarter: 2014Q1

REPORT INFORMATION
  Report Type: Report from Study
  Country: US (occurrence: US)
  Receive Date: 20140305
  Receipt Date: 20140305
  Transmission Date: 20141002
  Serious: No
  Sender: FDA-Public Use
  Company Number: US-ABBVIE-13P-163-1138176-00

PATIENT
  Sex: Female

DRUGS (8)
  1. HUMIRA [Suspect]
     Indication: CROHN^S DISEASE
     Route: 058
  2. HUMIRA [Suspect]
     Route: 058
  3. HUMIRA [Suspect]
  4. CITALOPRAM [Concomitant]
     Indication: PRODUCT USED FOR UNKNOWN INDICATION
  5. DICYCLOMINE [Concomitant]
     Indication: PRODUCT USED FOR UNKNOWN INDICATION
  6. IMURAN [Concomitant]
     Indication: PRODUCT USED FOR UNKNOWN INDICATION
  7. PREMPRO [Concomitant]
     Indication: PRODUCT USED FOR UNKNOWN INDICATION
     Dosage: 0.3-1.5 MG
  8. ALENDRONATE SODIUM [Concomitant]
     Indication: PRODUCT USED FOR UNKNOWN INDICATION

REACTIONS (1)
  - Diarrhoea [Recovered/Resolved]
